FAERS Safety Report 12367928 (Version 1)
Quarter: 2016Q2

REPORT INFORMATION
  Report Type: Other
  Country: US (occurrence: US)
  Receive Date: 20160513
  Receipt Date: 20160513
  Transmission Date: 20160815
  Serious: Yes (Other)
  Sender: FDA-Public Use
  Company Number: US-IGI LABORATORIES, INC.-1052185

PATIENT
  Age: 69 Year
  Sex: Male

DRUGS (2)
  1. DOBUTAMINE HYDROCHLORIDE. [Suspect]
     Active Substance: DOBUTAMINE HYDROCHLORIDE
     Indication: CARDIAC FAILURE CONGESTIVE
  2. MILRINONE LACTATE. [Concomitant]
     Active Substance: MILRINONE LACTATE
     Route: 065

REACTIONS (6)
  - Leukocytosis [Recovered/Resolved]
  - General physical health deterioration [Recovered/Resolved]
  - Eosinophilic myocarditis [Recovered/Resolved]
  - Mental status changes [Recovered/Resolved]
  - Hypotension [Recovered/Resolved]
  - Right ventricular failure [Recovered/Resolved]
